FAERS Safety Report 23271770 (Version 1)
Quarter: 2023Q4

REPORT INFORMATION
  Report Type: Spontaneous
  Country: CN (occurrence: CN)
  Receive Date: 20231207
  Receipt Date: 20231207
  Transmission Date: 20240110
  Serious: Yes (Other)
  Sender: FDA-Public Use
  Company Number: CN-PFIZER INC-PV202300192787

PATIENT
  Age: 42 Year
  Sex: Male

DRUGS (10)
  1. FLUCONAZOLE [Interacting]
     Active Substance: FLUCONAZOLE
     Indication: Infection
     Dosage: 400 MG, 1X/DAY
     Route: 041
     Dates: start: 20221124, end: 20221207
  2. PALIPERIDONE [Interacting]
     Active Substance: PALIPERIDONE
     Dosage: 3 MG, 1X/DAY (QN)
     Route: 045
     Dates: start: 20221124, end: 20221129
  3. MEROPENEM [Concomitant]
     Active Substance: MEROPENEM
     Indication: Infection
     Dosage: 1 G, 3X/DAY
     Route: 041
     Dates: start: 20221116, end: 20221120
  4. VANCOMYCIN [Concomitant]
     Active Substance: VANCOMYCIN
     Indication: Infection
     Dosage: 1 G, Q12H
     Route: 041
     Dates: start: 20221116, end: 20221120
  5. TIGECYCLINE [Concomitant]
     Active Substance: TIGECYCLINE
     Indication: Infection
     Dosage: 25 MG, Q12H
     Route: 041
     Dates: start: 20221116, end: 20221118
  6. VORICONAZOLE [Concomitant]
     Active Substance: VORICONAZOLE
     Indication: Infection
     Dosage: 0.2 G, 1X/DAY
     Route: 041
     Dates: start: 20221116, end: 20221122
  7. TACROLIMUS [Concomitant]
     Active Substance: TACROLIMUS
     Indication: Immunosuppressant drug therapy
     Dosage: 0.5 MG, 2X/DAY
     Route: 045
     Dates: start: 20221123, end: 20221207
  8. GANCICLOVIR [Concomitant]
     Active Substance: GANCICLOVIR
     Indication: Cytomegalovirus infection
     Dosage: 750 MG, 1X/DAY
     Route: 041
     Dates: start: 20221123, end: 20221207
  9. MAGNESIUM ISOGLYCYRRHIZINATE [Concomitant]
     Active Substance: MAGNESIUM ISOGLYCYRRHIZINATE
     Dosage: 200 MG, 1X/DAY
     Route: 041
     Dates: start: 20221129, end: 20221207
  10. PIPERACILLIN SODIUM\TAZOBACTAM SODIUM [Concomitant]
     Active Substance: PIPERACILLIN SODIUM\TAZOBACTAM SODIUM
     Indication: Infection
     Dosage: 4.5 G, Q8H
     Route: 041
     Dates: start: 20221121, end: 20221207

REACTIONS (2)
  - Drug interaction [Recovering/Resolving]
  - Drug-induced liver injury [Recovering/Resolving]
